FAERS Safety Report 9535051 (Version 1)
Quarter: 2013Q3

REPORT INFORMATION
  Report Type: Spontaneous
  Country: IT (occurrence: IT)
  Receive Date: 20130918
  Receipt Date: 20130918
  Transmission Date: 20140515
  Serious: Yes (Other)
  Sender: FDA-Public Use
  Company Number: IT-TEVA-431992ISR

PATIENT
  Age: 40 Year
  Sex: Male

DRUGS (5)
  1. ALPRAZOLAM 0.5MG SUN PHARMA [Suspect]
     Indication: INTENTIONAL SELF-INJURY
     Dosage: 50 MILLIGRAM DAILY;
     Route: 048
     Dates: start: 20130826, end: 20130826
  2. TAVOR 1MG [Suspect]
     Indication: INTENTIONAL SELF-INJURY
     Dosage: 20 TABLET DAILY;
     Route: 048
     Dates: start: 20130826, end: 20130826
  3. TAVOR 1MG [Concomitant]
     Indication: MENTAL DISORDER
     Dosage: 3 TABLET DAILY;
     Route: 048
     Dates: start: 20130402, end: 20130825
  4. ZYPREXA 2.5MG [Concomitant]
     Dosage: 4 TABLET DAILY;
  5. CIPRALEX [Concomitant]
     Dosage: 1 TABLET DAILY;

REACTIONS (2)
  - Sopor [Recovering/Resolving]
  - Drug abuse [Recovering/Resolving]
